FAERS Safety Report 6628234-6 (Version None)
Quarter: 2010Q1

REPORT INFORMATION
  Report Type: 
  Country: None (occurrence: None)
  Receive Date: 20100311
  Receipt Date: 20091029
  Transmission Date: 20100710
  Serious: Yes (Hospitalization)
  Sender: FDA-Public Use
  Company Number: PHHY2009TW60836

PATIENT

DRUGS (1)
  1. GLEEVEC [Suspect]
     Dosage: 400 MG

REACTIONS (2)
  - MUSCULAR WEAKNESS [None]
  - SURGERY [None]
